FAERS Safety Report 7736847-3 (Version None)
Quarter: 2011Q3

REPORT INFORMATION
  Report Type: 
  Country: None (occurrence: None)
  Receive Date: 20110902
  Receipt Date: 20110822
  Transmission Date: 20111222
  Serious: Yes (Hospitalization, Other)
  Sender: FDA-Public Use
  Company Number: 2011MA004110

PATIENT
  Sex: Female
  Weight: 50.5307 kg

DRUGS (57)
  1. COMBIVENT [Concomitant]
  2. ACTONEL [Concomitant]
  3. CLINDAMYCIN [Concomitant]
  4. SIMVASTATIN [Concomitant]
  5. CLONAZEPAM [Concomitant]
  6. DORZOLAMIDE [Concomitant]
  7. CIPROFLOXACIN [Concomitant]
  8. XALATAN [Concomitant]
  9. INSULIN [Concomitant]
  10. ASPIRIN [Concomitant]
  11. METOLAZINE [Concomitant]
  12. ACETAMINOPHEN [Concomitant]
  13. VITAMIN TAB [Concomitant]
  14. XENAZINE [Concomitant]
  15. KLOR-CON [Concomitant]
  16. CLOZAPINE [Concomitant]
  17. NIACIN [Concomitant]
  18. MIRALAX [Concomitant]
  19. LEVAQUIN [Concomitant]
  20. COREG [Concomitant]
  21. FUROSEMIDE [Concomitant]
  22. COSOPT [Concomitant]
  23. PERIDEX [Concomitant]
  24. MECLIZINE [Concomitant]
  25. CLONAZEPAM [Concomitant]
  26. POTASSIUM [Concomitant]
  27. CALCIUM CARBONATE [Concomitant]
  28. ENALAPRIL MALEATE [Concomitant]
  29. ARANESP [Concomitant]
  30. EMLA [Concomitant]
  31. VOLTAREN [Concomitant]
  32. MILRINONE [Concomitant]
  33. SEROQUEL [Concomitant]
  34. SINEMET [Concomitant]
  35. DIGOXIN [Concomitant]
  36. LASIX [Concomitant]
  37. ISOSORBIDE DINITRATE [Concomitant]
  38. LISINOPRIL [Concomitant]
  39. FOLIC ACID [Concomitant]
  40. LANOXIN [Concomitant]
  41. ZOCOR [Concomitant]
  42. LOVAZA [Concomitant]
  43. HYDROCODONE [Concomitant]
  44. METAMUCIL-2 [Concomitant]
  45. NEXIUM [Concomitant]
  46. CORTICOSPORIN [Concomitant]
  47. METOCLOPRAMIDE [Suspect]
     Indication: IMPAIRED GASTRIC EMPTYING
     Dosage: 10 MG;TID;PO
     Route: 048
     Dates: start: 20080923, end: 20100201
  48. GABAPENTIN [Concomitant]
  49. ZOCOR [Concomitant]
  50. PRILOSEC [Concomitant]
  51. PROPDXYPHENE [Concomitant]
  52. CHLORPROPRAMIDE [Concomitant]
  53. LIDODERM [Concomitant]
  54. TRICOR [Concomitant]
  55. FERROUS SULFATE TAB [Concomitant]
  56. SODIUM BICARBONATE CITRATE [Concomitant]
  57. VITAMIN D [Concomitant]

REACTIONS (47)
  - MEMORY IMPAIRMENT [None]
  - ATROPHIC VULVOVAGINITIS [None]
  - DIVERTICULUM [None]
  - OCCULT BLOOD POSITIVE [None]
  - ABDOMINAL PAIN LOWER [None]
  - PELVIC PAIN [None]
  - ATRIAL FIBRILLATION [None]
  - BACTERIAL TEST POSITIVE [None]
  - ECONOMIC PROBLEM [None]
  - DIZZINESS [None]
  - RALES [None]
  - CONTUSION [None]
  - HYPOPHAGIA [None]
  - HAEMOGLOBIN DECREASED [None]
  - SPEECH DISORDER [None]
  - ANAEMIA [None]
  - SYNCOPE [None]
  - POLLAKIURIA [None]
  - RENAL IMPAIRMENT [None]
  - HEART RATE DECREASED [None]
  - DYSPNOEA [None]
  - OSTEOPENIA [None]
  - MYOCARDIAL ISCHAEMIA [None]
  - DYSKINESIA [None]
  - TREMOR [None]
  - DISTURBANCE IN ATTENTION [None]
  - MUSCLE ATROPHY [None]
  - RECTAL HAEMORRHAGE [None]
  - HAEMORRHOIDS [None]
  - CARDIOMEGALY [None]
  - EMOTIONAL DISORDER [None]
  - MUSCULOSKELETAL PAIN [None]
  - LUNG DISORDER [None]
  - CONSTIPATION [None]
  - EAR PAIN [None]
  - BLOOD TRIGLYCERIDES INCREASED [None]
  - HAEMATOCRIT DECREASED [None]
  - DYSARTHRIA [None]
  - OEDEMA [None]
  - TARDIVE DYSKINESIA [None]
  - DEMENTIA [None]
  - FALL [None]
  - GINGIVAL PAIN [None]
  - BURNING SENSATION [None]
  - DEVICE RELATED INFECTION [None]
  - PULMONARY VASCULAR DISORDER [None]
  - BLOOD GLUCOSE INCREASED [None]
